FAERS Safety Report 16997466 (Version 5)
Quarter: 2020Q2

REPORT INFORMATION
  Report Type: Spontaneous
  Country: IT (occurrence: IT)
  Receive Date: 20191106
  Receipt Date: 20200603
  Transmission Date: 20200713
  Serious: Yes (Hospitalization, Other)
  Sender: FDA-Public Use
  Company Number: IT-AUROBINDO-AUR-APL-2019-070549

PATIENT
  Age: 39 Year
  Sex: Female

DRUGS (11)
  1. PREDNISONE. [Suspect]
     Active Substance: PREDNISONE
     Dosage: 5 MILLIGRAM, ONCE A DAY
     Route: 065
     Dates: start: 201801
  2. METHOTREXATE. [Suspect]
     Active Substance: METHOTREXATE
     Indication: RHEUMATOID ARTHRITIS
     Dosage: 15 MILLIGRAM, EVERY WEEK
     Route: 058
     Dates: end: 201705
  3. FLUTICASONE FUROATE;VILANTEROL [Suspect]
     Active Substance: FLUTICASONE FUROATE\VILANTEROL TRIFENATATE
     Indication: PRODUCT USED FOR UNKNOWN INDICATION
     Dosage: ONCE A DAY (92/22 UG DAILY)
     Route: 055
     Dates: start: 201801
  4. PREDNISONE. [Suspect]
     Active Substance: PREDNISONE
     Indication: RHEUMATOID ARTHRITIS
     Dosage: 12.5 MILLIGRAM, ONCE A DAY
     Route: 065
     Dates: start: 2018
  5. COLECALCIFEROL [Concomitant]
     Active Substance: CHOLECALCIFEROL
     Indication: PRODUCT USED FOR UNKNOWN INDICATION
     Dosage: 25000 INTERNATIONAL UNIT, MONTHLY
     Route: 065
  6. ENTECAVIR. [Suspect]
     Active Substance: ENTECAVIR
     Indication: ANTIVIRAL PROPHYLAXIS
     Dosage: 0.5 MILLIGRAM, ONCE A DAY
     Route: 065
     Dates: start: 201801
  7. PREDNISONE. [Suspect]
     Active Substance: PREDNISONE
     Dosage: 7.5 MILLIGRAM, ONCE A DAY
     Route: 065
     Dates: start: 2018
  8. PREDNISONE. [Suspect]
     Active Substance: PREDNISONE
     Dosage: 10 MILLIGRAM, ONCE A DAY
     Route: 065
     Dates: start: 2018
  9. LEFLUNOMIDE. [Suspect]
     Active Substance: LEFLUNOMIDE
     Indication: RHEUMATOID ARTHRITIS
     Dosage: 20 MILLIGRAM, ONCE A DAY
     Route: 065
     Dates: start: 201802, end: 201803
  10. ESOMEPRAZOLE. [Concomitant]
     Active Substance: ESOMEPRAZOLE MAGNESIUM
     Indication: PRODUCT USED FOR UNKNOWN INDICATION
     Dosage: 40 MILLIGRAM, ONCE A DAY
     Route: 065
  11. LEVOTHYROXINE. [Concomitant]
     Active Substance: LEVOTHYROXINE
     Indication: AUTOIMMUNE THYROIDITIS
     Dosage: 50 MICROGRAM, ONCE A DAY
     Route: 065

REACTIONS (5)
  - Hepatic enzyme increased [Recovered/Resolved]
  - Hepatitis E [Recovered/Resolved]
  - Fatigue [Recovered/Resolved]
  - Liver injury [Recovered/Resolved]
  - Pruritus [Recovered/Resolved]

NARRATIVE: CASE EVENT DATE: 201803
